APPROVED DRUG PRODUCT: BETAXOLOL HYDROCHLORIDE
Active Ingredient: BETAXOLOL HYDROCHLORIDE
Strength: EQ 0.5% BASE
Dosage Form/Route: SOLUTION/DROPS;OPHTHALMIC
Application: A075630 | Product #001 | TE Code: AT
Applicant: MEDIMETRIKS PHARMACEUTICALS INC
Approved: Apr 12, 2001 | RLD: No | RS: No | Type: RX